FAERS Safety Report 24556934 (Version 1)
Quarter: 2024Q4

REPORT INFORMATION
  Report Type: Spontaneous
  Country: FR (occurrence: FR)
  Receive Date: 20241028
  Receipt Date: 20241028
  Transmission Date: 20250114
  Serious: Yes (Life-Threatening)
  Sender: ABBVIE
  Company Number: None

PATIENT
  Age: 72 Year
  Sex: Male
  Weight: 77 kg

DRUGS (3)
  1. SEVOFLURANE [Suspect]
     Active Substance: SEVOFLURANE
     Indication: General anaesthesia
     Dosage: TIME INTERVAL: 1 TOTAL: LIQUIDE POUR INHALATION PAR VAPEUR
     Route: 055
     Dates: start: 20240926, end: 20240926
  2. PROPOFOL [Suspect]
     Active Substance: PROPOFOL
     Indication: General anaesthesia
     Dosage: TIME INTERVAL: 1 TOTAL: ?MULSION INJECTABLE OU POUR PERFUSION??1%
     Route: 065
     Dates: start: 20240926, end: 20240926
  3. ROCURONIUM [Suspect]
     Active Substance: ROCURONIUM BROMIDE
     Indication: General anaesthesia
     Dosage: TIME INTERVAL: 1 TOTAL: 10 MG/ML, SOLUTION INJECTABLE/POUR PERFUSION
     Route: 065
     Dates: start: 20240926, end: 20240926

REACTIONS (1)
  - Anaphylactic shock [Recovered/Resolved]

NARRATIVE: CASE EVENT DATE: 20240926
